FAERS Safety Report 8979593 (Version 1)
Quarter: 2012Q4

REPORT INFORMATION
  Report Type: 
  Country: BR (occurrence: BR)
  Receive Date: 20121221
  Receipt Date: 20121221
  Transmission Date: 20130627
  Serious: Yes (Death)
  Sender: FDA-Public Use
  Company Number: PHHY2012BR117952

PATIENT
  Sex: Female

DRUGS (3)
  1. DIOVAN [Suspect]
  2. ATENOLOL [Suspect]
  3. SINVASTIN [Suspect]

REACTIONS (1)
  - Death [Fatal]
